FAERS Safety Report 5241729-5 (Version None)
Quarter: 2007Q1

REPORT INFORMATION
  Report Type: 
  Country: None (occurrence: None)
  Receive Date: 20070220
  Receipt Date: 20070202
  Transmission Date: 20070707
  Serious: Yes (Other)
  Sender: FDA-Public Use
  Company Number: AW-JNJFOC-20070201034

PATIENT
  Age: 50 Year
  Sex: Female

DRUGS (5)
  1. REMICADE [Suspect]
     Indication: RHEUMATOID ARTHRITIS
     Route: 042
  2. METHOTREXATE [Concomitant]
  3. PREDNSIONE [Concomitant]
     Route: 048
  4. ARCOXIA [Concomitant]
  5. ARAVA [Concomitant]

REACTIONS (1)
  - TUBERCULOSIS [None]
